FAERS Safety Report 18364542 (Version 1)
Quarter: 2020Q4

REPORT INFORMATION
  Report Type: Spontaneous
  Country: US (occurrence: US)
  Receive Date: 20201009
  Receipt Date: 20201009
  Transmission Date: 20210114
  Serious: Yes (Hospitalization, Other)
  Sender: FDA-Public Use
  Company Number: US-PFIZER INC-2020378623

PATIENT
  Age: 49 Year
  Sex: Male

DRUGS (11)
  1. PHENYTOIN. [Suspect]
     Active Substance: PHENYTOIN
     Indication: PARTIAL SEIZURES
     Dosage: 300 MG, DAILY (WAS BEGUN 22 DAYS PRIOR TO TRANSFER)
  2. PHENYTOIN. [Suspect]
     Active Substance: PHENYTOIN
     Dosage: 500 MG, SINGLE (ONE DOSE)
  3. CLINDAMYCIN. [Concomitant]
     Active Substance: CLINDAMYCIN
     Dosage: 600 MG, 4X/DAY (EVERY 6 HOURS)
     Route: 042
  4. CHLORPROMAZINE. [Concomitant]
     Active Substance: CHLORPROMAZINE
     Indication: HICCUPS
     Dosage: 25 MG, 3X/DAY (EVERY 8 HOURS)
     Route: 048
  5. CHLORDIAZEPOXIDE. [Concomitant]
     Active Substance: CHLORDIAZEPOXIDE
     Dosage: 10 MG, 4X/DAY (EVERY 6 HOURS)
     Route: 048
  6. GENTAMICIN. [Concomitant]
     Active Substance: GENTAMICIN
     Dosage: 80 MG, 3X/DAY (EVERY 8 HOURS)
     Route: 042
  7. ERYTHROMYCIN ETHYL SUCCINATE [ERYTHROMYCIN ETHYLSUCCINATE] [Concomitant]
     Indication: PNEUMONIA
     Dosage: 400 MG, EVERY 4 HRS (FOR 2 DAYS PRIOR TO TRANSFER)
     Route: 048
  8. PENICILLIN G [BENZYLPENICILLIN] [Concomitant]
     Active Substance: PENICILLIN G
     Indication: PNEUMONIA
     Dosage: UNK, EVERY 4 HRS (2 MILLION UNITS)
     Route: 042
  9. PROCAINE PENICILLIN G [Concomitant]
     Active Substance: PENICILLIN G PROCAINE
     Indication: PNEUMONIA
     Dosage: UNK, 2X/DAY (600000 UNITS)
  10. GENTAMICIN. [Concomitant]
     Active Substance: GENTAMICIN
     Dosage: 100 MG, 3X/DAY (EVERY 8 HOURS)
     Route: 042
  11. CODEINE [Concomitant]
     Active Substance: CODEINE
     Indication: PAIN
     Dosage: 30 MG, 4X/DAY (EVERY 6 HOURS)
     Route: 048

REACTIONS (5)
  - Serum sickness [Recovered/Resolved]
  - Hepatitis [Recovered/Resolved]
  - Lymphadenopathy [Recovered/Resolved]
  - Toxic epidermal necrolysis [Recovered/Resolved]
  - Drug hypersensitivity [Recovered/Resolved]
